FAERS Safety Report 7480948-4 (Version None)
Quarter: 2011Q2

REPORT INFORMATION
  Report Type: 
  Country: None (occurrence: None)
  Receive Date: 20110512
  Receipt Date: 20110512
  Transmission Date: 20111010
  Serious: Yes (Other)
  Sender: FDA-Public Use
  Company Number: None

PATIENT
  Sex: Female
  Weight: 61.2356 kg

DRUGS (1)
  1. DYAZIDE [Suspect]
     Indication: BLOOD PRESSURE
     Dosage: ONE ONCE A DAY
     Dates: start: 20110404, end: 20110421

REACTIONS (6)
  - PRODUCT SUBSTITUTION ISSUE [None]
  - NAUSEA [None]
  - DRUG HYPERSENSITIVITY [None]
  - DIZZINESS [None]
  - PRODUCT FORMULATION ISSUE [None]
  - REACTION TO DRUG EXCIPIENTS [None]
